FAERS Safety Report 20093421 (Version 1)
Quarter: 2021Q4

REPORT INFORMATION
  Report Type: Spontaneous
  Country: US (occurrence: US)
  Receive Date: 20211121
  Receipt Date: 20211121
  Transmission Date: 20220303
  Serious: No
  Sender: FDA-Public Use
  Company Number: US-SA-SAC20211112001363

PATIENT
  Age: 59 Year
  Sex: Female

DRUGS (1)
  1. DUPIXENT [Suspect]
     Active Substance: DUPILUMAB
     Indication: Dermatitis atopic
     Dosage: 2 DF
     Route: 058
     Dates: start: 2021

REACTIONS (2)
  - Intervertebral disc protrusion [Unknown]
  - Back pain [Unknown]

NARRATIVE: CASE EVENT DATE: 20211001
